FAERS Safety Report 18731301 (Version 1)
Quarter: 2021Q1

REPORT INFORMATION
  Report Type: Report from Study
  Country: US (occurrence: US)
  Receive Date: 20210112
  Receipt Date: 20210112
  Transmission Date: 20210419
  Serious: Yes (Hospitalization, Other)
  Sender: FDA-Public Use
  Company Number: US-TAKEDA-US201905304

PATIENT
  Age: 57 Year
  Sex: Female
  Weight: 55.78 kg

DRUGS (4)
  1. GATTEX [Suspect]
     Active Substance: TEDUGLUTIDE\WATER
     Indication: SHORT-BOWEL SYNDROME
     Dosage: 1.4 MILLIGRAM, 1X/DAY:QD
     Route: 058
     Dates: start: 20180925
  2. GATTEX [Suspect]
     Active Substance: TEDUGLUTIDE\WATER
     Indication: SHORT-BOWEL SYNDROME
     Dosage: 1.4 MILLIGRAM, 1X/DAY:QD
     Route: 058
     Dates: start: 20180925
  3. GATTEX [Suspect]
     Active Substance: TEDUGLUTIDE\WATER
     Indication: SHORT-BOWEL SYNDROME
     Dosage: 1.4 MILLIGRAM, 1X/DAY:QD
     Route: 058
     Dates: start: 20180925
  4. GATTEX [Suspect]
     Active Substance: TEDUGLUTIDE\WATER
     Indication: SHORT-BOWEL SYNDROME
     Dosage: 1.4 MILLIGRAM, 1X/DAY:QD
     Route: 058
     Dates: start: 20180925

REACTIONS (2)
  - Dialysis related complication [Unknown]
  - Vascular device infection [Unknown]

NARRATIVE: CASE EVENT DATE: 20190212
